FAERS Safety Report 19824468 (Version 1)
Quarter: 2021Q3

REPORT INFORMATION
  Report Type: Report from Study
  Country: None (occurrence: US)
  Receive Date: 20210914
  Receipt Date: 20210914
  Transmission Date: 20211014
  Serious: Yes (Other)
  Sender: FDA-Public Use
  Company Number: US-ABBVIE-21K-163-4035935-00

PATIENT
  Sex: Female

DRUGS (4)
  1. PFIZER?BIONTECH COVID?19 VACCINE [Concomitant]
     Active Substance: TOZINAMERAN
     Indication: COVID-19 IMMUNISATION
     Route: 030
     Dates: start: 20210314, end: 20210314
  2. PFIZER?BIONTECH COVID?19 VACCINE [Concomitant]
     Active Substance: TOZINAMERAN
     Route: 030
     Dates: start: 20210404, end: 20210404
  3. RINVOQ [Suspect]
     Active Substance: UPADACITINIB
     Route: 048
  4. RINVOQ [Suspect]
     Active Substance: UPADACITINIB
     Indication: RHEUMATOID ARTHRITIS
     Route: 048

REACTIONS (10)
  - Cataract [Not Recovered/Not Resolved]
  - Eye haemorrhage [Not Recovered/Not Resolved]
  - Nerve compression [Not Recovered/Not Resolved]
  - Memory impairment [Not Recovered/Not Resolved]
  - Intervertebral disc degeneration [Not Recovered/Not Resolved]
  - Pain [Not Recovered/Not Resolved]
  - Urinary tract infection [Recovered/Resolved]
  - Intervertebral disc protrusion [Not Recovered/Not Resolved]
  - Osteoarthritis [Not Recovered/Not Resolved]
  - Rheumatoid arthritis [Unknown]

NARRATIVE: CASE EVENT DATE: 2021
